FAERS Safety Report 7257088-2 (Version None)
Quarter: 2011Q1

REPORT INFORMATION
  Report Type: 
  Country: None (occurrence: None)
  Receive Date: 20110129
  Receipt Date: 20100817
  Transmission Date: 20110831
  Serious: No
  Sender: FDA-Public Use
  Company Number: US-ABBOTT-10P-163-0664418-00

PATIENT
  Age: 29 Year
  Sex: Male

DRUGS (2)
  1. SUBOXONE [Concomitant]
     Indication: PRODUCT USED FOR UNKNOWN INDICATION
  2. HUMIRA [Suspect]
     Indication: PSORIASIS
     Dates: start: 20100422

REACTIONS (5)
  - OEDEMA PERIPHERAL [None]
  - SKIN BURNING SENSATION [None]
  - ERYTHEMA [None]
  - EPISTAXIS [None]
  - PSORIASIS [None]
